FAERS Safety Report 14688275 (Version 2)
Quarter: 2018Q2

REPORT INFORMATION
  Report Type: Spontaneous
  Country: US (occurrence: US)
  Receive Date: 20180328
  Receipt Date: 20180422
  Transmission Date: 20180711
  Serious: Yes (Other)
  Sender: FDA-Public Use
  Company Number: US-APOTEX-2018AP008629

PATIENT
  Age: 65 Year
  Sex: Female

DRUGS (4)
  1. CIPROFLOXACIN. [Suspect]
     Active Substance: CIPROFLOXACIN
     Indication: ERYTHEMA OF EYELID
     Dosage: UNK
     Route: 065
  2. CEFALEXIN [Suspect]
     Active Substance: CEPHALEXIN
     Indication: ERYTHEMA OF EYELID
     Dosage: UNK
     Route: 065
  3. CEFADROXIL. [Suspect]
     Active Substance: CEFADROXIL
     Indication: ERYTHEMA OF EYELID
     Dosage: UNK
     Route: 065
  4. AZITHROMYCIN ANHYDROUS. [Suspect]
     Active Substance: AZITHROMYCIN ANHYDROUS
     Indication: ERYTHEMA OF EYELID
     Dosage: UNK
     Route: 065

REACTIONS (1)
  - Drug ineffective [Unknown]
